FAERS Safety Report 15597892 (Version 4)
Quarter: 2019Q1

REPORT INFORMATION
  Report Type: Spontaneous
  Country: CA (occurrence: CA)
  Receive Date: 20181108
  Receipt Date: 20190123
  Transmission Date: 20190417
  Serious: Yes (Hospitalization)
  Sender: FDA-Public Use
  Company Number: CA-CELGENEUS-CAN-20181100638

PATIENT
  Age: 77 Year
  Sex: Male

DRUGS (40)
  1. VENETOCLAX. [Concomitant]
     Active Substance: VENETOCLAX
     Indication: ACUTE MYELOID LEUKAEMIA
     Route: 065
  2. PARACETAMOL [Concomitant]
     Active Substance: ACETAMINOPHEN
     Indication: MUSCLE SPASMS
     Dosage: 1000 MILLIGRAM
     Route: 048
     Dates: start: 2008
  3. ATIVAN [Concomitant]
     Active Substance: LORAZEPAM
     Indication: INSOMNIA
     Dosage: 0.5-1MG
     Route: 060
     Dates: start: 20080925, end: 20110817
  4. LEVOFLOXACIN. [Concomitant]
     Active Substance: LEVOFLOXACIN
     Indication: PYREXIA
     Dosage: 500 MILLIGRAM
     Route: 048
     Dates: start: 20180703
  5. SODIUM CHLORIDE. [Concomitant]
     Active Substance: SODIUM CHLORIDE
     Indication: CATHETER MANAGEMENT
     Dosage: 1-2 LITERS
     Route: 040
     Dates: start: 20180625
  6. COLACE [Concomitant]
     Active Substance: DOCUSATE SODIUM
     Indication: CONSTIPATION
     Dosage: 200 MILLIGRAM
     Route: 048
     Dates: start: 20180704
  7. ATENOLOL. [Concomitant]
     Active Substance: ATENOLOL
     Indication: HYPERTENSION
     Dosage: 12.5 MILLIGRAM
     Route: 048
     Dates: start: 20141104, end: 20180626
  8. FOLIC ACID. [Concomitant]
     Active Substance: FOLIC ACID
     Indication: ANAEMIA
     Dosage: 5 MILLIGRAM
     Route: 048
     Dates: start: 20180911
  9. TRANEXAMIC ACID. [Concomitant]
     Active Substance: TRANEXAMIC ACID
     Indication: HAEMATURIA
     Route: 041
     Dates: start: 20180910
  10. DILAUDID [Concomitant]
     Active Substance: HYDROMORPHONE HYDROCHLORIDE
     Indication: HAEMATURIA
     Dosage: 1 MILLIGRAM
     Route: 058
     Dates: start: 20180910, end: 20181124
  11. AZACITIDINE. [Suspect]
     Active Substance: AZACITIDINE
     Indication: ACUTE MYELOID LEUKAEMIA
     Dosage: 75 MILLIGRAM/SQ. METER
     Route: 058
     Dates: start: 20180626
  12. SENOKOT [Concomitant]
     Active Substance: SENNOSIDES
     Indication: CONSTIPATION
     Dosage: 17.2 MILLIGRAM
     Route: 048
     Dates: start: 20180630, end: 20180704
  13. SENOKOT [Concomitant]
     Active Substance: SENNOSIDES
     Indication: CONSTIPATION
  14. SODIUM CHLORIDE. [Concomitant]
     Active Substance: SODIUM CHLORIDE
     Indication: HAEMATURIA
  15. LOTEPREDNOL [Concomitant]
     Active Substance: LOTEPREDNOL
     Indication: DRY EYE
     Dosage: 1 DROPS
     Route: 047
     Dates: start: 20180621
  16. SOLIFENACEN SUCCINATE [Concomitant]
     Indication: BLADDER SPASM
     Dosage: 5 MILLIGRAM
     Route: 048
     Dates: start: 20180927
  17. ALLOPURINOL. [Concomitant]
     Active Substance: ALLOPURINOL
     Indication: PROPHYLAXIS
     Dosage: 300 MILLIGRAM
     Route: 048
     Dates: start: 20090507, end: 20180630
  18. OTRIVIN SPRAYED GAUZE [Concomitant]
     Indication: EPISTAXIS
     Dosage: 1-2 SPRAYS
     Route: 045
     Dates: start: 20180803
  19. BENADRYL [Concomitant]
     Active Substance: DIPHENHYDRAMINE HYDROCHLORIDE
     Indication: PROPHYLAXIS
     Route: 041
     Dates: start: 20180910
  20. TELMISARTAN. [Concomitant]
     Active Substance: TELMISARTAN
     Indication: HYPERTENSION
     Route: 065
  21. LEVOFLOXACIN. [Concomitant]
     Active Substance: LEVOFLOXACIN
     Indication: PYREXIA
     Dosage: 750 MILLIGRAM
     Route: 048
     Dates: start: 20180630, end: 20180701
  22. SEPTRA [Concomitant]
     Active Substance: SULFAMETHOXAZOLE\TRIMETHOPRIM
     Indication: INFECTION PROPHYLAXIS
     Dosage: 1 TABLET
     Route: 048
     Dates: start: 20180717
  23. FLUCONAZOL [Concomitant]
     Active Substance: FLUCONAZOLE
     Indication: ANTIFUNGAL PROPHYLAXIS
     Dosage: 400 MILLIGRAM
     Route: 048
     Dates: start: 20180719
  24. BISOPROLOL [Concomitant]
     Active Substance: BISOPROLOL
     Indication: VENTRICULAR DYSFUNCTION
     Dosage: 2.5 MILLIGRAM
     Route: 048
     Dates: start: 20181103
  25. ATORVASTATIN [Concomitant]
     Active Substance: ATORVASTATIN
     Indication: PRODUCT USED FOR UNKNOWN INDICATION
     Route: 065
  26. TOLTERODINE [Concomitant]
     Active Substance: TOLTERODINE
     Indication: BLADDER SPASM
     Dosage: 4 MILLIGRAM
     Route: 048
     Dates: start: 20180916, end: 20181107
  27. OTRIVIN [Concomitant]
     Active Substance: XYLOMETAZOLINE
     Indication: NASAL CONGESTION
     Dosage: 1-2 DF
     Route: 045
     Dates: start: 2008
  28. HYDROCORTISONE. [Concomitant]
     Active Substance: HYDROCORTISONE
     Indication: PRODUCT USED FOR UNKNOWN INDICATION
     Dosage: APPLY ON SKIN QD PRN, DURING VIDAZA ADMINISTRATIONS
     Route: 061
     Dates: start: 20180630
  29. PANTOLOC [Concomitant]
     Active Substance: PANTOPRAZOLE SODIUM
     Indication: GASTROOESOPHAGEAL REFLUX DISEASE
     Dosage: 40 MILLIGRAM
     Route: 048
     Dates: start: 20180710
  30. ACYCLOVIR. [Concomitant]
     Active Substance: ACYCLOVIR
     Indication: ANTIVIRAL PROPHYLAXIS
     Dosage: 800 MILLIGRAM
     Route: 048
     Dates: start: 20180717
  31. FLUCONAZOL [Concomitant]
     Active Substance: FLUCONAZOLE
     Indication: ORAL CANDIDIASIS
  32. AMOXICILLIN-CLAVULIN [Concomitant]
     Indication: HAEMATURIA
     Dosage: 1750 MILLIGRAM
     Route: 048
     Dates: start: 20180913
  33. LACTULOSE. [Concomitant]
     Active Substance: LACTULOSE
     Indication: PROPHYLAXIS
     Dosage: 15 MILLILITER
     Route: 048
     Dates: start: 20180913
  34. TYLENOL WITH CODEINE [Concomitant]
     Active Substance: ACETAMINOPHEN\CODEINE PHOSPHATE
     Indication: MUSCLE SPASMS
     Dosage: 1 TABLET
     Route: 048
     Dates: start: 20110418
  35. ZOPICLONE [Concomitant]
     Active Substance: ZOPICLONE
     Indication: INSOMNIA
     Dosage: 7.5 MILLIGRAM
     Route: 048
     Dates: start: 20110817
  36. TYLENOL WITH CODEINE [Concomitant]
     Active Substance: ACETAMINOPHEN\CODEINE PHOSPHATE
     Indication: HEADACHE
     Dosage: 1950 MILLIGRAM
     Route: 048
     Dates: start: 20181024, end: 20181024
  37. COLACE [Concomitant]
     Active Substance: DOCUSATE SODIUM
     Indication: CONSTIPATION
  38. ATENOLOL. [Concomitant]
     Active Substance: ATENOLOL
     Dosage: 12.5 MILLIGRAM
     Route: 048
     Dates: start: 20180628
  39. TAMSULOSIN [Concomitant]
     Active Substance: TAMSULOSIN
     Indication: HAEMATURIA
     Route: 048
     Dates: start: 20180828
  40. ONDANSETRON [Concomitant]
     Active Substance: ONDANSETRON
     Indication: NAUSEA
     Dosage: 8 MILLIGRAM
     Route: 048
     Dates: start: 20180815

REACTIONS (2)
  - Left ventricular dysfunction [Not Recovered/Not Resolved]
  - Left ventricular failure [Not Recovered/Not Resolved]

NARRATIVE: CASE EVENT DATE: 20181023
